FAERS Safety Report 7291945-6 (Version None)
Quarter: 2011Q1

REPORT INFORMATION
  Report Type: 
  Country: None (occurrence: None)
  Receive Date: 20110214
  Receipt Date: 20110208
  Transmission Date: 20110831
  Serious: Yes (Death, Hospitalization, Other)
  Sender: FDA-Public Use
  Company Number: SE-MERCK-1102SWE00012

PATIENT
  Age: 64 Year
  Sex: Male

DRUGS (2)
  1. ZOCOR [Suspect]
     Indication: HYPERLIPIDAEMIA
     Route: 048
  2. ZOCOR [Suspect]
     Indication: HYPERTRIGLYCERIDAEMIA
     Route: 048

REACTIONS (1)
  - HEPATIC NEOPLASM MALIGNANT [None]
